FAERS Safety Report 5677126-8 (Version None)
Quarter: 2008Q1

REPORT INFORMATION
  Report Type: 
  Country: None (occurrence: None)
  Receive Date: 20080324
  Receipt Date: 20080313
  Transmission Date: 20080703
  Serious: Yes (Other)
  Sender: FDA-Public Use
  Company Number: HQWYE210617JUL04

PATIENT
  Sex: Female
  Weight: 68.1 kg

DRUGS (2)
  1. PREMPRO [Suspect]
     Indication: HOT FLUSH
  2. PREMARIN [Suspect]
     Indication: HOT FLUSH

REACTIONS (1)
  - BREAST CANCER METASTATIC [None]
